FAERS Safety Report 10530427 (Version 1)
Quarter: 2014Q4

REPORT INFORMATION
  Report Type: Spontaneous
  Country: GB (occurrence: GB)
  Receive Date: 20141021
  Receipt Date: 20141021
  Transmission Date: 20150528
  Serious: Yes (Disabling, Other)
  Sender: FDA-Public Use
  Company Number: GB-TEVA-515416ISR

PATIENT
  Age: 40 Year
  Weight: 60.77 kg

DRUGS (7)
  1. DULOXETINE HYDROCHLORIDE. [Concomitant]
     Active Substance: DULOXETINE HYDROCHLORIDE
  2. BISOPROLOL FUMARATE. [Concomitant]
     Active Substance: BISOPROLOL FUMARATE
  3. QUETIAPINE [Concomitant]
     Active Substance: QUETIAPINE
     Indication: DEPRESSION
  4. LAMOTRIGINE. [Suspect]
     Active Substance: LAMOTRIGINE
     Indication: DEPRESSION
     Dosage: 225 MILLIGRAM DAILY; 225MG MORNING AND EVENING
     Route: 048
     Dates: start: 200401
  5. VENLAFAXINE [Concomitant]
     Active Substance: VENLAFAXINE HYDROCHLORIDE
     Indication: DEPRESSION
  6. RAMIPRIL. [Concomitant]
     Active Substance: RAMIPRIL
  7. LITHIUM [Concomitant]
     Active Substance: LITHIUM CARBONATE
     Indication: DEPRESSION

REACTIONS (3)
  - Coordination abnormal [Recovering/Resolving]
  - Dyskinesia [Recovering/Resolving]
  - Balance disorder [Recovering/Resolving]

NARRATIVE: CASE EVENT DATE: 2004
